FAERS Safety Report 5064346-9 (Version None)
Quarter: 2006Q3

REPORT INFORMATION
  Report Type: 
  Country: None (occurrence: None)
  Receive Date: 20060728
  Receipt Date: 20060512
  Transmission Date: 20061208
  Serious: Yes (Hospitalization)
  Sender: FDA-Public Use
  Company Number: 2006UW09690

PATIENT
  Age: 6338 Day
  Sex: Female
  Weight: 109 kg

DRUGS (5)
  1. SEROQUEL [Suspect]
     Indication: SCHIZOPHRENIA
     Route: 048
     Dates: start: 20060411
  2. SEROQUEL [Suspect]
     Route: 048
     Dates: start: 20060406, end: 20060410
  3. SEROQUEL [Suspect]
     Route: 048
     Dates: start: 20060210, end: 20060405
  4. ALBUTEROL [Concomitant]
     Indication: ASTHMA
     Route: 055
  5. FLONASE [Concomitant]
     Indication: ASTHMA
     Route: 055

REACTIONS (8)
  - ABNORMAL BEHAVIOUR [None]
  - BLOOD TRIGLYCERIDES INCREASED [None]
  - DISSOCIATION [None]
  - HEART RATE INCREASED [None]
  - IMPULSIVE BEHAVIOUR [None]
  - INSOMNIA [None]
  - SCHIZOPHRENIA [None]
  - UPPER RESPIRATORY TRACT INFECTION [None]
